FAERS Safety Report 18523181 (Version 1)
Quarter: 2020Q4

REPORT INFORMATION
  Report Type: Spontaneous
  Country: US (occurrence: US)
  Receive Date: 20201119
  Receipt Date: 20201119
  Transmission Date: 20210114
  Serious: Yes (Other)
  Sender: FDA-Public Use
  Company Number: US-TAKEDA-2020TUS047331

PATIENT
  Sex: Male

DRUGS (4)
  1. GATTEX [Suspect]
     Active Substance: TEDUGLUTIDE\WATER
     Indication: PRODUCT USED FOR UNKNOWN INDICATION
     Dosage: (DOSE: 0.2500; UNIT: UNKNOWN), QD
     Route: 058
     Dates: start: 20180531
  2. GATTEX [Suspect]
     Active Substance: TEDUGLUTIDE\WATER
     Indication: PRODUCT USED FOR UNKNOWN INDICATION
     Dosage: (DOSE: 0.2500; UNIT: UNKNOWN), QD
     Route: 058
     Dates: start: 20180531
  3. GATTEX [Suspect]
     Active Substance: TEDUGLUTIDE\WATER
     Indication: PRODUCT USED FOR UNKNOWN INDICATION
     Dosage: (DOSE: 0.2500; UNIT: UNKNOWN), QD
     Route: 058
     Dates: start: 20180531
  4. GATTEX [Suspect]
     Active Substance: TEDUGLUTIDE\WATER
     Indication: PRODUCT USED FOR UNKNOWN INDICATION
     Dosage: (DOSE: 0.2500; UNIT: UNKNOWN), QD
     Route: 058
     Dates: start: 20180531

REACTIONS (1)
  - Crohn^s disease [Not Recovered/Not Resolved]
